FAERS Safety Report 14861481 (Version 2)
Quarter: 2019Q1

REPORT INFORMATION
  Report Type: Spontaneous
  Country: DE (occurrence: DE)
  Receive Date: 20180508
  Receipt Date: 20190214
  Transmission Date: 20190417
  Serious: Yes (Death, Hospitalization, Other)
  Sender: FDA-Public Use
  Company Number: DE-SA-2018SA125504

PATIENT
  Age: 86 Year
  Sex: Female
  Weight: 67 kg

DRUGS (15)
  1. FLUOROURACIL. [Suspect]
     Active Substance: FLUOROURACIL
     Dosage: 4000 MG,QOW
     Route: 041
     Dates: start: 20130902, end: 20140122
  2. FOLINIC ACID [Suspect]
     Active Substance: LEUCOVORIN
     Indication: COLORECTAL CANCER
     Dosage: 700 MG,UNK
     Route: 042
     Dates: start: 20130902, end: 20140121
  3. FLUOROURACIL. [Suspect]
     Active Substance: FLUOROURACIL
     Dosage: 600 MG,QOW
     Route: 040
     Dates: start: 20140213, end: 20140331
  4. NOVALGIN (METAMIZOLE SODIUM) [Concomitant]
     Active Substance: METAMIZOLE SODIUM
     Indication: TUMOUR PAIN
     Dosage: 60 DF,QD (1-1-1)
     Route: 048
     Dates: start: 20140110, end: 20140428
  5. PANTOZOL [Concomitant]
     Active Substance: PANTOPRAZOLE SODIUM
     Indication: PROPHYLAXIS
     Dosage: 40 MG, QD (1-0-1)
     Route: 048
     Dates: start: 20130726, end: 20140428
  6. FLUOROURACIL. [Suspect]
     Active Substance: FLUOROURACIL
     Indication: COLORECTAL CANCER
     Dosage: 700 MG,QOW
     Route: 040
     Dates: start: 20130902, end: 20140121
  7. LYRICA [Concomitant]
     Active Substance: PREGABALIN
     Indication: POLYNEUROPATHY
     Dosage: 150 MG,QD
     Route: 048
     Dates: start: 20140110, end: 20140428
  8. TARGIN [Concomitant]
     Active Substance: NALOXONE HYDROCHLORIDE\OXYCODONE HYDROCHLORIDE
     Indication: TUMOUR PAIN
     Dosage: 5/2.5 MG, 1-0-1
     Route: 048
     Dates: start: 20140212, end: 20140428
  9. FLUOROURACIL. [Suspect]
     Active Substance: FLUOROURACIL
     Dosage: 3500 MG,QOW
     Route: 041
     Dates: start: 20140213, end: 20140401
  10. FOLINIC ACID [Suspect]
     Active Substance: LEUCOVORIN
     Dosage: 650 MG,UNK
     Route: 042
     Dates: start: 20140213, end: 20140331
  11. PALLADON [Concomitant]
     Active Substance: HYDROMORPHONE
     Indication: TUMOUR PAIN
     Dosage: 8 MG,QD
     Route: 048
     Dates: start: 20140110, end: 20140428
  12. OXALIPLATIN. [Suspect]
     Active Substance: OXALIPLATIN
     Indication: COLORECTAL CANCER
     Dosage: 150 MG,QOW
     Route: 042
     Dates: start: 20130902, end: 20140121
  13. OXALIPLATIN. [Suspect]
     Active Substance: OXALIPLATIN
     Dosage: 130 MG,QOW
     Route: 042
     Dates: start: 20140213, end: 20140331
  14. BEVACIZUMAB. [Suspect]
     Active Substance: BEVACIZUMAB
     Indication: COLORECTAL CANCER
     Dosage: 350 MG,UNK
     Route: 042
     Dates: start: 20130902, end: 20140121
  15. BEVACIZUMAB. [Suspect]
     Active Substance: BEVACIZUMAB
     Dosage: 300 MG,UNK
     Route: 042
     Dates: start: 20140331, end: 20140331

REACTIONS (9)
  - Vomiting [Recovered/Resolved]
  - Hemiparesis [Unknown]
  - Dehydration [Recovered/Resolved]
  - Gastric ulcer [Recovered/Resolved]
  - Cerebrovascular accident [Fatal]
  - Gastrooesophageal reflux disease [Recovered/Resolved]
  - Nausea [Recovered/Resolved]
  - Malignant neoplasm progression [Unknown]
  - Duodenal ulcer [Recovered/Resolved]

NARRATIVE: CASE EVENT DATE: 20140131
